FAERS Safety Report 25708487 (Version 1)
Quarter: 2025Q3

REPORT INFORMATION
  Report Type: Spontaneous
  Country: GB (occurrence: GB)
  Receive Date: 20250821
  Receipt Date: 20250821
  Transmission Date: 20251020
  Serious: Yes (Disabling, Other)
  Sender: CELLTRION
  Company Number: None

PATIENT

DRUGS (3)
  1. YUFLYMA [Suspect]
     Active Substance: ADALIMUMAB-AATY
     Indication: Adverse drug reaction
     Dosage: 40MG ONCE A FORTNIGHT
     Dates: start: 20250722
  2. YUFLYMA [Suspect]
     Active Substance: ADALIMUMAB-AATY
     Indication: Spondylitis
  3. YUFLYMA [Suspect]
     Active Substance: ADALIMUMAB-AATY
     Indication: Sacroiliitis

REACTIONS (12)
  - Arthralgia [Unknown]
  - Rash erythematous [Not Recovered/Not Resolved]
  - Abdominal distension [Unknown]
  - Anger [Unknown]
  - Burning sensation [Unknown]
  - Injection site rash [Unknown]
  - Injection site pain [Unknown]
  - Headache [Unknown]
  - Vomiting [Unknown]
  - Pyrexia [Unknown]
  - Pruritus [Unknown]
  - Intentional product use issue [Unknown]

NARRATIVE: CASE EVENT DATE: 20250722
